FAERS Safety Report 15650726 (Version 1)
Quarter: 2018Q4

REPORT INFORMATION
  Report Type: Spontaneous
  Country: US (occurrence: US)
  Receive Date: 20181123
  Receipt Date: 20181123
  Transmission Date: 20190205
  Serious: Yes (Other)
  Sender: FDA-Public Use
  Company Number: US-009507513-1811USA006039

PATIENT
  Age: 27 Year
  Sex: Female
  Weight: 56.69 kg

DRUGS (1)
  1. NEXPLANON [Suspect]
     Active Substance: ETONOGESTREL
     Dosage: EVERY 3 YEARS, IN LEFT ARM
     Route: 059
     Dates: start: 201511

REACTIONS (3)
  - Insomnia [Not Recovered/Not Resolved]
  - Angina pectoris [Not Recovered/Not Resolved]
  - Pain in extremity [Not Recovered/Not Resolved]
